FAERS Safety Report 5216991-5 (Version None)
Quarter: 2007Q1

REPORT INFORMATION
  Report Type: 
  Country: None (occurrence: None)
  Receive Date: 20070119
  Receipt Date: 20070103
  Transmission Date: 20070707
  Serious: Yes (Other)
  Sender: FDA-Public Use
  Company Number: 8021212

PATIENT
  Sex: Female
  Weight: 2.98 kg

DRUGS (1)
  1. KEPPRA [Suspect]
     Indication: EPILEPSY
     Dosage: 500 MG 2/D TRP
     Route: 064
     Dates: end: 20061001

REACTIONS (3)
  - BULIMIA NERVOSA [None]
  - HYPOKALAEMIA [None]
  - VOMITING [None]
